FAERS Safety Report 8578272 (Version 11)
Quarter: 2013Q3

REPORT INFORMATION
  Report Type: Report from Study
  Country: US (occurrence: US)
  Receive Date: 20120524
  Receipt Date: 20130909
  Transmission Date: 20140515
  Serious: Yes (Life-Threatening, Hospitalization)
  Sender: FDA-Public Use
  Company Number: US-ROCHE-1069939

PATIENT
  Age: 70 Year
  Sex: Male
  Weight: 111.8 kg

DRUGS (19)
  1. TOCILIZUMAB [Suspect]
     Indication: RHEUMATOID ARTHRITIS
     Dosage: DOSE OF LAST OPEN-LABEL SC TAKEN 162.  DATE OF LAST DOSE : /2012
     Route: 058
     Dates: start: 20110321
  2. BLINDED TOCILIZUMAB [Suspect]
     Indication: RHEUMATOID ARTHRITIS
     Dosage: DATE OF MOST RECENT DOSE OF BLINDED SC PRIOR TO AE ONSET 07/MAR/2011
     Route: 058
     Dates: start: 20100927
  3. BLINDED TOCILIZUMAB [Suspect]
     Indication: RHEUMATOID ARTHRITIS
     Dosage: DATE OF MOST RECENT DOSE OF BLINDED IV PRIOR TO AE ONSET 14/FEB/2011
     Route: 042
     Dates: start: 20100927
  4. GABAPENTIN [Concomitant]
     Indication: RHEUMATOID ARTHRITIS
     Route: 048
     Dates: start: 20070601
  5. COUMADIN [Concomitant]
     Route: 048
  6. DIGITEK [Concomitant]
     Route: 048
  7. FOLIC ACID [Concomitant]
     Indication: RHEUMATOID ARTHRITIS
     Route: 048
  8. LOPRESSOR [Concomitant]
     Route: 048
  9. METHOTREXATE [Concomitant]
     Indication: RHEUMATOID ARTHRITIS
     Route: 048
     Dates: start: 20081112
  10. SLOW-K [Concomitant]
     Route: 048
  11. NITROLINGUAL SPRAY [Concomitant]
     Route: 060
  12. SPIRIVA [Concomitant]
     Route: 065
  13. TORASEMIDE [Concomitant]
     Route: 048
     Dates: start: 20100401
  14. SPIRONOLACTON [Concomitant]
     Route: 048
     Dates: start: 20100401
  15. OMEPRAZOLE [Concomitant]
     Route: 048
     Dates: start: 20000401
  16. XANAX [Concomitant]
     Route: 048
  17. PERCOCET [Concomitant]
     Indication: RHEUMATOID ARTHRITIS
     Route: 048
     Dates: start: 20100922
  18. CYMBALTA [Concomitant]
     Route: 048
     Dates: start: 20101105
  19. SIMVASTATIN [Concomitant]
     Route: 048
     Dates: start: 20110805

REACTIONS (9)
  - Megacolon [Recovered/Resolved]
  - Acidosis [Recovered/Resolved]
  - Septic shock [Recovered/Resolved]
  - Ileus [Recovered/Resolved]
  - Colitis [Recovered/Resolved]
  - Renal failure acute [Recovered/Resolved]
  - Gastritis [Recovered/Resolved]
  - Peritonitis [Recovered/Resolved]
  - Diverticulitis [Recovered/Resolved]
